FAERS Safety Report 13921890 (Version 4)
Quarter: 2017Q4

REPORT INFORMATION
  Report Type: Spontaneous
  Country: US (occurrence: US)
  Receive Date: 20170830
  Receipt Date: 20171108
  Transmission Date: 20180320
  Serious: No
  Sender: FDA-Public Use
  Company Number: US-ACTELION-A-NJ2017-158773

PATIENT
  Age: 50 Year
  Sex: Female

DRUGS (2)
  1. REMODULIN [Suspect]
     Active Substance: TREPROSTINIL
     Indication: PRODUCT USED FOR UNKNOWN INDICATION
     Route: 065
  2. OPSUMIT [Suspect]
     Active Substance: MACITENTAN
     Indication: PULMONARY ARTERIAL HYPERTENSION
     Dosage: 10 MG, QD
     Route: 048
     Dates: start: 20170822

REACTIONS (9)
  - Catheter site pain [Unknown]
  - Nausea [Unknown]
  - Diarrhoea [Unknown]
  - Catheter site discharge [Unknown]
  - Catheter site erythema [Unknown]
  - Sinusitis [Unknown]
  - Vomiting [Unknown]
  - Headache [Unknown]
  - Administration site odour [Unknown]
